FAERS Safety Report 7445119-6 (Version None)
Quarter: 2011Q2

REPORT INFORMATION
  Report Type: 
  Country: None (occurrence: None)
  Receive Date: 20110429
  Receipt Date: 20110418
  Transmission Date: 20111010
  Serious: Yes (Other)
  Sender: FDA-Public Use
  Company Number: US-BAXTER-2011BH011739

PATIENT
  Age: 42 Year
  Sex: Female

DRUGS (1)
  1. HEPARIN [Suspect]
     Indication: PULMONARY EMBOLISM
     Route: 065

REACTIONS (3)
  - HEPARIN-INDUCED THROMBOCYTOPENIA [None]
  - ADRENAL INSUFFICIENCY [None]
  - ADRENAL HAEMORRHAGE [None]
